FAERS Safety Report 21439968 (Version 1)
Quarter: 2022Q4

REPORT INFORMATION
  Report Type: Spontaneous
  Country: US (occurrence: US)
  Receive Date: 20221011
  Receipt Date: 20221011
  Transmission Date: 20230112
  Serious: No
  Sender: FDA-Public Use
  Company Number: US-MORPHOSYS US-2022-MOR001717-US

PATIENT
  Age: 70 Year
  Sex: Male
  Weight: 65.76 kg

DRUGS (1)
  1. MONJUVI [Suspect]
     Active Substance: TAFASITAMAB-CXIX
     Indication: Diffuse large B-cell lymphoma
     Dosage: 12 MG/KG (DAYS 1 AND 15 EVERY 28 DAYS)
     Route: 042
     Dates: start: 20210315, end: 20220318

REACTIONS (2)
  - Rash [Unknown]
  - Swelling [Unknown]

NARRATIVE: CASE EVENT DATE: 20220318
